FAERS Safety Report 15114964 (Version 1)
Quarter: 2018Q3

REPORT INFORMATION
  Report Type: Spontaneous
  Country: BE (occurrence: BE)
  Receive Date: 20180706
  Receipt Date: 20180706
  Transmission Date: 20181010
  Serious: Yes (Hospitalization, Other)
  Sender: FDA-Public Use
  Company Number: BE-AUROBINDO-AUR-APL-2017-04072

PATIENT
  Age: 32 Year
  Sex: Female

DRUGS (1)
  1. IBUPROFEN. [Suspect]
     Active Substance: IBUPROFEN
     Indication: HEADACHE
     Dosage: UNKNOWN
     Route: 048

REACTIONS (2)
  - Salivary gland cyst [Unknown]
  - Toxic epidermal necrolysis [Unknown]
